FAERS Safety Report 4376873-8 (Version None)
Quarter: 2004Q2

REPORT INFORMATION
  Report Type: 
  Country: None (occurrence: None)
  Receive Date: 20040608
  Receipt Date: 20030604
  Transmission Date: 20050107
  Serious: Yes (Other)
  Sender: FDA-Public Use
  Company Number: 200311925BCC

PATIENT
  Sex: Female

DRUGS (2)
  1. ALEVE [Suspect]
     Dosage: 220 MG, ONCE, ORAL
     Route: 048
     Dates: start: 20030603
  2. UNKNOWN HIGH BLOOD PRESSRUE MEDICATION [Concomitant]

REACTIONS (5)
  - ANAPHYLACTIC REACTION [None]
  - DYSPHAGIA [None]
  - DYSPNOEA [None]
  - SKIN BURNING SENSATION [None]
  - URTICARIA [None]
